FAERS Safety Report 4442539-9 (Version None)
Quarter: 2004Q3

REPORT INFORMATION
  Report Type: 
  Country: None (occurrence: None)
  Receive Date: 20040903
  Receipt Date: 20040728
  Transmission Date: 20050211
  Serious: Yes (Other)
  Sender: FDA-Public Use
  Company Number: 2004UW15979

PATIENT
  Age: 73 Year
  Sex: Female
  Weight: 79.3795 kg

DRUGS (9)
  1. CRESTOR [Suspect]
     Indication: BLOOD CHOLESTEROL INCREASED
     Dosage: 10 MG PO
     Route: 048
  2. ATENOLOL [Concomitant]
  3. INDAPAMIDE [Concomitant]
  4. COZAAR [Concomitant]
  5. LIBRAX [Concomitant]
  6. ZANTAC [Concomitant]
  7. SYNTHROID [Concomitant]
  8. ALTEPLASE [Concomitant]
  9. STREPTOKINASE [Concomitant]

REACTIONS (8)
  - ABDOMINAL DISTENSION [None]
  - ABDOMINAL PAIN UPPER [None]
  - CONSTIPATION [None]
  - FATIGUE [None]
  - FEELING ABNORMAL [None]
  - NAUSEA [None]
  - REFLUX OESOPHAGITIS [None]
  - STOMACH DISCOMFORT [None]
